FAERS Safety Report 7855404-1 (Version None)
Quarter: 2011Q4

REPORT INFORMATION
  Report Type: 
  Country: None (occurrence: None)
  Receive Date: 20111026
  Receipt Date: 20110927
  Transmission Date: 20120403
  Serious: Yes (Death)
  Sender: FDA-Public Use
  Company Number: CA-ROCHE-1000436

PATIENT
  Sex: Female
  Weight: 34.5 kg

DRUGS (15)
  1. HYDROXYZINE [Concomitant]
     Indication: PRURITUS
     Route: 048
  2. COPEGUS [Suspect]
     Indication: HEPATITIS C
     Route: 048
     Dates: start: 20110629, end: 20110717
  3. VITAMIN D [Concomitant]
     Route: 048
  4. CITALOPRAM HYDROBROMIDE [Concomitant]
     Indication: PREMENSTRUAL SYNDROME
  5. HYDROCORTISONE [Concomitant]
     Indication: DERMATITIS
     Route: 061
  6. QUETIAPINE FUMARATE [Concomitant]
     Indication: INSOMNIA
     Route: 048
  7. PEG-INTERFERON ALFA 2A [Suspect]
     Indication: HEPATITIS C
     Route: 058
     Dates: start: 20110629, end: 20110914
  8. ALBUTEROL [Concomitant]
     Route: 055
  9. CITALOPRAM HYDROBROMIDE [Concomitant]
     Indication: DYSTHYMIC DISORDER
     Route: 048
  10. COPEGUS [Suspect]
     Route: 048
     Dates: start: 20110725, end: 20110731
  11. COPEGUS [Suspect]
     Route: 048
     Dates: start: 20110801, end: 20110917
  12. TMC435 (NS3/4A PROTEASE INHIBITOR) [Suspect]
     Indication: HEPATITIS C
     Route: 048
     Dates: start: 20110630, end: 20110920
  13. ACETAMINOFEN [Concomitant]
     Indication: MYALGIA
     Route: 048
  14. SUBOXONE [Concomitant]
     Indication: MYALGIA
     Route: 060
  15. SUBOXONE [Concomitant]
     Indication: DRUG DEPENDENCE
     Route: 060

REACTIONS (3)
  - SEPTIC SHOCK [None]
  - PNEUMONIA [None]
  - BRADYCARDIA [None]
